FAERS Safety Report 25935789 (Version 1)
Quarter: 2025Q4

REPORT INFORMATION
  Report Type: Spontaneous
  Country: CN (occurrence: CN)
  Receive Date: 20251017
  Receipt Date: 20251017
  Transmission Date: 20260117
  Serious: Yes (Other)
  Sender: GE HEALTHCARE
  Company Number: None

PATIENT
  Age: 18 Year
  Sex: Female
  Weight: 93 kg

DRUGS (1)
  1. VISIPAQUE [Suspect]
     Active Substance: IODIXANOL
     Indication: Scan
     Dosage: 32 GM, TOTAL
     Route: 041
     Dates: start: 20251002, end: 20251002

REACTIONS (6)
  - Restlessness [Recovering/Resolving]
  - Dysphoria [Recovering/Resolving]
  - Scratch [Recovering/Resolving]
  - Urticaria [Recovering/Resolving]
  - Rash erythematous [Recovering/Resolving]
  - Rash pruritic [Recovering/Resolving]

NARRATIVE: CASE EVENT DATE: 20251002
